FAERS Safety Report 16278863 (Version 3)
Quarter: 2019Q3

REPORT INFORMATION
  Report Type: Spontaneous
  Country: JP (occurrence: JP)
  Receive Date: 20190506
  Receipt Date: 20190724
  Transmission Date: 20191004
  Serious: Yes (Death, Other)
  Sender: FDA-Public Use
  Company Number: JP-009507513-1904JPN003312J

PATIENT
  Age: 6 Decade
  Sex: Male

DRUGS (3)
  1. PEMETREXED DISODIUM [Concomitant]
     Active Substance: PEMETREXED DISODIUM
     Dosage: 500 MILLIGRAM, Q3W
     Route: 041
  2. KEYTRUDA [Suspect]
     Active Substance: PEMBROLIZUMAB
     Indication: NON-SMALL CELL LUNG CANCER
     Dosage: 200 MILLIGRAM, Q3W
     Route: 041
     Dates: start: 20190411, end: 2019
  3. CISPLATIN. [Concomitant]
     Active Substance: CISPLATIN
     Dosage: 75 MILLIGRAM, Q3W
     Route: 041
     Dates: start: 20190411, end: 2019

REACTIONS (4)
  - Malignant neoplasm progression [Fatal]
  - Pulmonary cavitation [Unknown]
  - Pleural effusion [Recovering/Resolving]
  - Lymphadenopathy [Unknown]

NARRATIVE: CASE EVENT DATE: 201904
